FAERS Safety Report 21883947 (Version 1)
Quarter: 2023Q1

REPORT INFORMATION
  Report Type: Spontaneous
  Country: US (occurrence: None)
  Receive Date: 20230118
  Receipt Date: 20230118
  Transmission Date: 20230417
  Serious: Yes (Hospitalization)
  Sender: FDA-Public Use
  Company Number: None

PATIENT
  Age: 64 Year
  Sex: Male
  Weight: 87.54 kg

DRUGS (1)
  1. CLOZAPINE [Suspect]
     Active Substance: CLOZAPINE
     Indication: Schizophrenia
     Dates: start: 20191127

REACTIONS (6)
  - Orthostatic hypotension [None]
  - Symptom recurrence [None]
  - Asthenia [None]
  - Fall [None]
  - Product administration error [None]
  - Wrong product administered [None]

NARRATIVE: CASE EVENT DATE: 20221005
